FAERS Safety Report 8811746 (Version 1)
Quarter: 2012Q4

REPORT INFORMATION
  Report Type: Spontaneous
  Country: US (occurrence: None)
  Receive Date: 20120925
  Receipt Date: 20120925
  Transmission Date: 20130627
  Serious: Yes (Other)
  Sender: FDA-Public Use
  Company Number: None

PATIENT
  Age: 44 Year
  Sex: Female
  Weight: 56.25 kg

DRUGS (2)
  1. LEVOTHROID [Suspect]
     Route: 048
     Dates: start: 20120401, end: 20120517
  2. LEVOTHROID [Suspect]
     Route: 048
     Dates: start: 20120518, end: 20120712

REACTIONS (3)
  - Blood thyroid stimulating hormone increased [None]
  - Hypothyroidism [None]
  - Product quality issue [None]
